FAERS Safety Report 15106058 (Version 2)
Quarter: 2018Q3

REPORT INFORMATION
  Report Type: Spontaneous
  Country: GB (occurrence: GB)
  Receive Date: 20180704
  Receipt Date: 20180717
  Transmission Date: 20181010
  Serious: Yes (Hospitalization, Other)
  Sender: FDA-Public Use
  Company Number: GB-AUROBINDO-AUR-APL-2018-033677

PATIENT
  Age: 43 Year
  Sex: Female

DRUGS (7)
  1. IBUPROFEN TABLETS [Suspect]
     Active Substance: IBUPROFEN
     Dosage: 16 DF, UNK (16 TABLETS)
     Route: 048
  2. PARACETAMOL TABLET [Suspect]
     Active Substance: ACETAMINOPHEN
     Indication: PRODUCT USED FOR UNKNOWN INDICATION
     Dosage: 8 G, UNK
     Route: 048
  3. DICLOFENAC [Suspect]
     Active Substance: DICLOFENAC
     Indication: PRODUCT USED FOR UNKNOWN INDICATION
     Dosage: 14 DF, UNK (14 TABLETS)
     Route: 048
  4. IBUPROFEN TABLETS [Suspect]
     Active Substance: IBUPROFEN
     Dosage: 16 DF, UNK (16 TABLETS)
     Route: 048
  5. IBUPROFEN TABLETS [Suspect]
     Active Substance: IBUPROFEN
     Indication: PRODUCT USED FOR UNKNOWN INDICATION
     Dosage: 16
     Route: 048
  6. PARACETAMOL TABLET [Suspect]
     Active Substance: ACETAMINOPHEN
     Dosage: 8 G, QD
     Route: 048
  7. DICLOFENAC [Suspect]
     Active Substance: DICLOFENAC
     Indication: PRODUCT USED FOR UNKNOWN INDICATION
     Dosage: 14 DOSAGE FORM,14 TABLET
     Route: 048

REACTIONS (1)
  - Coma [Recovering/Resolving]
